FAERS Safety Report 15150278 (Version 1)
Quarter: 2018Q3

REPORT INFORMATION
  Report Type: Spontaneous
  Country: GB (occurrence: GB)
  Receive Date: 20180716
  Receipt Date: 20180716
  Transmission Date: 20181010
  Serious: Yes (Disabling)
  Sender: FDA-Public Use
  Company Number: GB-US WORLDMEDS, LLC-STA_00017647

PATIENT
  Age: 57 Year
  Sex: Female
  Weight: 61 kg

DRUGS (23)
  1. PHENOXYMETHYLPENICILLIN [Concomitant]
     Active Substance: PENICILLIN V
     Dates: start: 20150429, end: 20150506
  2. ZOPICLONE [Concomitant]
     Active Substance: ZOPICLONE
     Dosage: AT NIGHT
     Dates: start: 20150116
  3. IBUPROFEN. [Concomitant]
     Active Substance: IBUPROFEN
     Dosage: APPLY 3?4 TIMES/DAY
     Dates: start: 20150409
  4. APOMORPHINE HYDROCHLORIDE [Suspect]
     Active Substance: APOMORPHINE HYDROCHLORIDE
     Dates: start: 20150402
  5. CITALOPRAM [Concomitant]
     Active Substance: CITALOPRAM HYDROBROMIDE
     Dates: start: 20150116
  6. FUROSEMIDE. [Concomitant]
     Active Substance: FUROSEMIDE
     Dates: start: 20150116
  7. LAXIDO [Concomitant]
     Active Substance: POLYETHYLENE GLYCOL 3350\POTASSIUM CHLORIDE\SODIUM BICARBONATE\SODIUM CHLORIDE
     Dates: start: 20150116
  8. LIDOCAINE. [Concomitant]
     Active Substance: LIDOCAINE
     Dosage: USE AS DIRECTED
     Dates: start: 20150429, end: 20150506
  9. CO?BENELDOPA [Concomitant]
     Active Substance: BENSERAZIDE HYDROCHLORIDE\LEVODOPA
     Dosage: 8AM
     Dates: start: 20150116
  10. ELLESTE DUET [Concomitant]
     Dosage: AS DIRECTED
     Dates: start: 20150116
  11. ACIDEX [Concomitant]
     Active Substance: CALCIUM CARBONATE\SODIUM ALGINATE\SODIUM BICARBONATE
     Dates: start: 20150116
  12. ZAPAIN [Concomitant]
     Active Substance: ACETAMINOPHEN\CODEINE PHOSPHATE
     Dosage: 1?2 FOUR TIMES DAILY AS NECESSARY
     Dates: start: 20150427
  13. STALEVO [Concomitant]
     Active Substance: CARBIDOPA\ENTACAPONE\LEVODOPA
     Dates: start: 20150116
  14. DIAZEPAM. [Concomitant]
     Active Substance: DIAZEPAM
     Dosage: TAKE ONE OR TWO 8 HOURLY AS NEEDED
     Dates: start: 20150409, end: 20150412
  15. COCODAMOL [Concomitant]
     Active Substance: ACETAMINOPHEN\CODEINE PHOSPHATE
     Dosage: 1?2 FOUR TIMES A DAY AS NECESSARY
     Dates: start: 20150116, end: 20150427
  16. FERROUS FUMURATE [Concomitant]
     Dates: start: 20150116
  17. FOLIC ACID. [Concomitant]
     Active Substance: FOLIC ACID
     Dates: start: 20150116
  18. DOMPERIDONE [Concomitant]
     Active Substance: DOMPERIDONE
     Dates: start: 20150324
  19. ADCAL [Concomitant]
     Active Substance: CALCIUM CARBONATE
     Dates: start: 20150116
  20. LANSOPRAZOLE. [Concomitant]
     Active Substance: LANSOPRAZOLE
     Dates: start: 20150116
  21. LACTULOSE. [Concomitant]
     Active Substance: LACTULOSE
     Dosage: 5?10ML
     Dates: start: 20150116
  22. SENNA [Concomitant]
     Active Substance: SENNA LEAF\SENNOSIDES\SENNOSIDES A AND B
     Dates: start: 20150116
  23. PRAMIPEXOLE. [Concomitant]
     Active Substance: PRAMIPEXOLE
     Dosage: REDUCE AS DIRECTED BY CONSULTANT
     Dates: start: 20150220

REACTIONS (3)
  - Mood swings [Unknown]
  - Dyskinesia [Unknown]
  - Suicidal behaviour [Recovering/Resolving]

NARRATIVE: CASE EVENT DATE: 20150528
